FAERS Safety Report 20494547 (Version 1)
Quarter: 2022Q1

REPORT INFORMATION
  Report Type: Spontaneous
  Country: US (occurrence: US)
  Receive Date: 20220221
  Receipt Date: 20220221
  Transmission Date: 20220423
  Serious: No
  Sender: FDA-Public Use
  Company Number: US-SANOFI-00976490

PATIENT
  Sex: Male

DRUGS (4)
  1. ALLEGRA-D 24 HOUR ALLERGY AND CONGESTION [Suspect]
     Active Substance: FEXOFENADINE HYDROCHLORIDE\PSEUDOEPHEDRINE HYDROCHLORIDE
     Indication: Dyspnoea
     Dosage: UNK
  2. ALLEGRA-D 24 HOUR ALLERGY AND CONGESTION [Suspect]
     Active Substance: FEXOFENADINE HYDROCHLORIDE\PSEUDOEPHEDRINE HYDROCHLORIDE
     Indication: Cough
  3. MUCINEX [Concomitant]
     Active Substance: GUAIFENESIN
     Indication: Cough
     Dosage: UNK, QD
  4. MUCINEX [Concomitant]
     Active Substance: GUAIFENESIN
     Indication: Dyspnoea

REACTIONS (1)
  - Therapeutic response decreased [Unknown]
